FAERS Safety Report 9914964 (Version 1)
Quarter: 2014Q1

REPORT INFORMATION
  Report Type: Spontaneous
  Country: IT (occurrence: IT)
  Receive Date: 20140220
  Receipt Date: 20140220
  Transmission Date: 20141002
  Serious: Yes (Life-Threatening)
  Sender: FDA-Public Use
  Company Number: PHHY2014IT017324

PATIENT
  Sex: Female

DRUGS (2)
  1. AMIODARONE [Suspect]
     Indication: SUPRAVENTRICULAR TACHYCARDIA
     Dosage: 200 MG, QD
     Route: 048
     Dates: start: 20140110
  2. PRADAXA [Interacting]
     Indication: SUPRAVENTRICULAR TACHYCARDIA
     Dosage: 220 MG, QD
     Route: 048
     Dates: start: 20140113, end: 20140202

REACTIONS (1)
  - Rectal haemorrhage [Recovered/Resolved]
